FAERS Safety Report 18604558 (Version 2)
Quarter: 2020Q4

REPORT INFORMATION
  Report Type: Spontaneous
  Country: JP (occurrence: JP)
  Receive Date: 20201211
  Receipt Date: 20201225
  Transmission Date: 20210114
  Serious: Yes (Other)
  Sender: FDA-Public Use
  Company Number: JP-ASTELLAS-2020JP018248

PATIENT
  Age: 84 Year
  Sex: Male

DRUGS (1)
  1. FUNGUARD [Suspect]
     Active Substance: MICAFUNGIN SODIUM
     Indication: ORAL CANDIDIASIS
     Dosage: 100 MG/DAY, UNKNOWN FREQ.
     Route: 041
     Dates: start: 20201106, end: 20201119

REACTIONS (1)
  - Duodenal ulcer haemorrhage [Recovering/Resolving]

NARRATIVE: CASE EVENT DATE: 20201119
